FAERS Safety Report 4417919-8 (Version None)
Quarter: 2004Q2

REPORT INFORMATION
  Report Type: 
  Country: None (occurrence: None)
  Receive Date: 20040622
  Receipt Date: 20040305
  Transmission Date: 20050107
  Serious: Yes (Death)
  Sender: FDA-Public Use
  Company Number: 361046

PATIENT
  Age: 53 Year
  Sex: Male

DRUGS (1)
  1. XELODA [Suspect]
     Dosage: 500 MG 2 PER DAY ORAL
     Route: 048
     Dates: start: 20040115

REACTIONS (2)
  - DISEASE PROGRESSION [None]
  - HEPATIC NEOPLASM MALIGNANT [None]
